FAERS Safety Report 13865870 (Version 1)
Quarter: 2017Q3

REPORT INFORMATION
  Report Type: Spontaneous
  Country: US (occurrence: US)
  Receive Date: 20170814
  Receipt Date: 20170814
  Transmission Date: 20171127
  Serious: No
  Sender: FDA-Public Use
  Company Number: US-ROCHE-673376

PATIENT
  Age: 30 Year
  Sex: Female
  Weight: 68.2 kg

DRUGS (1)
  1. TAMIFLU [Suspect]
     Active Substance: OSELTAMIVIR PHOSPHATE
     Indication: H1N1 INFLUENZA
     Dosage: EVERY 12 HOURS. FORM: PILL
     Route: 048

REACTIONS (1)
  - Tongue coated [Recovering/Resolving]

NARRATIVE: CASE EVENT DATE: 20091206
